FAERS Safety Report 8589365-7 (Version None)
Quarter: 2012Q3

REPORT INFORMATION
  Report Type: 
  Country: None (occurrence: None)
  Receive Date: 20120813
  Receipt Date: 20120806
  Transmission Date: 20120928
  Serious: Yes (Life-Threatening, Hospitalization)
  Sender: FDA-Public Use
  Company Number: AT-ASTRAZENECA-2012SE26968

PATIENT
  Age: 6180 Day
  Sex: Female
  Weight: 54 kg

DRUGS (10)
  1. SEROQUEL XR [Suspect]
     Indication: SCHIZOTYPAL PERSONALITY DISORDER
     Route: 048
     Dates: start: 20120329, end: 20120409
  2. LORAZEPAM [Concomitant]
     Indication: SUICIDAL IDEATION
     Dosage: TWO HALF  AND A WHOLE DOSAGE FORM PER DAY
     Route: 048
     Dates: start: 20120406, end: 20120410
  3. SEROQUEL XR [Suspect]
     Dosage: OVERDOSE OF ABOUT 3-4000 MG
     Route: 048
     Dates: start: 20120410, end: 20120410
  4. SEROQUEL XR [Suspect]
     Dosage: OVERDOSE OF ABOUT 3-4000 MG
     Route: 048
     Dates: start: 20120410, end: 20120410
  5. SEROQUEL XR [Suspect]
     Indication: IMPULSIVE BEHAVIOUR
     Route: 048
     Dates: start: 20120329, end: 20120409
  6. SEROQUEL XR [Suspect]
     Indication: AFFECTIVE DISORDER
     Route: 048
     Dates: start: 20120329, end: 20120409
  7. LORAZEPAM [Concomitant]
     Indication: IMPULSIVE BEHAVIOUR
     Dosage: TWO HALF  AND A WHOLE DOSAGE FORM PER DAY
     Route: 048
     Dates: start: 20120406, end: 20120410
  8. SEROQUEL XR [Suspect]
     Dosage: OVERDOSE OF ABOUT 3-4000 MG
     Route: 048
     Dates: start: 20120410, end: 20120410
  9. SEROQUEL XR [Suspect]
     Indication: POST-TRAUMATIC STRESS DISORDER
     Route: 048
     Dates: start: 20120329, end: 20120409
  10. SEROQUEL XR [Suspect]
     Dosage: OVERDOSE OF ABOUT 3-4000 MG
     Route: 048
     Dates: start: 20120410, end: 20120410

REACTIONS (4)
  - SUICIDE ATTEMPT [None]
  - OFF LABEL USE [None]
  - OVERDOSE [None]
  - SOMNOLENCE [None]
